FAERS Safety Report 17930170 (Version 3)
Quarter: 2020Q4

REPORT INFORMATION
  Report Type: Spontaneous
  Country: JP (occurrence: JP)
  Receive Date: 20200623
  Receipt Date: 20201012
  Transmission Date: 20210113
  Serious: No
  Sender: FDA-Public Use
  Company Number: JP-REGENERON PHARMACEUTICALS, INC.-2020-44723

PATIENT

DRUGS (4)
  1. ADONA                              /00056903/ [Concomitant]
     Active Substance: CARBAZOCHROME SODIUM SULFONATE
     Indication: RETINAL HAEMORRHAGE
     Dosage: DAILY DOSE 3DF
     Route: 048
     Dates: start: 20200530
  2. EYLEA [Suspect]
     Active Substance: AFLIBERCEPT
     Indication: AGE-RELATED MACULAR DEGENERATION
     Dosage: LEFT EYE, DAILY DOSE 2 MG (0.05 ML)
     Route: 031
     Dates: start: 20200605, end: 20200605
  3. EYLEA [Suspect]
     Active Substance: AFLIBERCEPT
     Indication: POLYPOIDAL CHOROIDAL VASCULOPATHY
  4. TEARBALANCE [Concomitant]
     Active Substance: HYALURONATE SODIUM
     Indication: PUNCTATE KERATITIS
     Dosage: LEFT EYE, 6 TIMES A DAY
     Route: 047
     Dates: start: 20200606, end: 20200613

REACTIONS (1)
  - Vitreous opacities [Unknown]

NARRATIVE: CASE EVENT DATE: 20200610
